FAERS Safety Report 8424102-8 (Version None)
Quarter: 2012Q2

REPORT INFORMATION
  Report Type: 
  Country: None (occurrence: None)
  Receive Date: 20120608
  Receipt Date: 20110610
  Transmission Date: 20120825
  Serious: No
  Sender: FDA-Public Use
  Company Number: US-ASTRAZENECA-2011SE35997

PATIENT
  Sex: Female

DRUGS (1)
  1. PULMICORT [Suspect]
     Route: 055

REACTIONS (6)
  - EYE PROSTHESIS USER [None]
  - MEMORY IMPAIRMENT [None]
  - HEARING IMPAIRED [None]
  - EYE DISORDER [None]
  - MALAISE [None]
  - DYSPNOEA [None]
